FAERS Safety Report 5062530-1 (Version None)
Quarter: 2006Q3

REPORT INFORMATION
  Report Type: 
  Country: None (occurrence: None)
  Receive Date: 20060703
  Receipt Date: 20051129
  Transmission Date: 20061208
  Serious: No
  Sender: FDA-Public Use
  Company Number: 2005S1011502

PATIENT
  Age: 24 Year
  Sex: Male

DRUGS (1)
  1. CLOZAPINE [Suspect]
     Indication: DRUG USE FOR UNKNOWN INDICATION
     Dosage: 100 MG;PRN;ORAL
     Route: 048
     Dates: start: 20040401

REACTIONS (1)
  - GRANULOCYTOPENIA [None]
